FAERS Safety Report 15994485 (Version 1)
Quarter: 2019Q1

REPORT INFORMATION
  Report Type: Spontaneous
  Country: US (occurrence: US)
  Receive Date: 20190222
  Receipt Date: 20190222
  Transmission Date: 20190418
  Serious: No
  Sender: FDA-Public Use
  Company Number: US-INSYS THERAPEUTICS, INC-INS201801-000013

PATIENT
  Sex: Male

DRUGS (4)
  1. SUBSYS [Suspect]
     Active Substance: FENTANYL
     Indication: PLASMA CELL MYELOMA
     Route: 060
     Dates: start: 20180104
  2. SUBSYS [Suspect]
     Active Substance: FENTANYL
     Indication: PAIN
  3. NARCAN [Concomitant]
     Active Substance: NALOXONE HYDROCHLORIDE
  4. FENTANYL TRANSDERMAL SYSTEM [Concomitant]
     Active Substance: FENTANYL

REACTIONS (4)
  - Drug ineffective [Unknown]
  - Erythema [Unknown]
  - Influenza [Recovered/Resolved]
  - Rash [Recovered/Resolved]
